FAERS Safety Report 24584948 (Version 1)
Quarter: 2024Q4

REPORT INFORMATION
  Report Type: Spontaneous
  Country: CH (occurrence: CH)
  Receive Date: 20241106
  Receipt Date: 20241106
  Transmission Date: 20250114
  Serious: Yes (Other)
  Sender: DECIPHERA PHARMACEUTICALS
  Company Number: CH-DECIPHERA PHARMACEUTICALS LLC-2024CH000910

PATIENT

DRUGS (1)
  1. QINLOCK [Suspect]
     Active Substance: RIPRETINIB
     Indication: Product used for unknown indication
     Dosage: UNK

REACTIONS (3)
  - Malignant neoplasm progression [Unknown]
  - Hair colour changes [Unknown]
  - Alopecia [Unknown]
